FAERS Safety Report 6268356-5 (Version None)
Quarter: 2009Q3

REPORT INFORMATION
  Report Type: 
  Country: None (occurrence: None)
  Receive Date: 20090715
  Receipt Date: 20070514
  Transmission Date: 20100115
  Serious: Yes (Hospitalization, Other)
  Sender: FDA-Public Use
  Company Number: US-ASTRAZENECA-2006UW25074

PATIENT
  Age: 637 Month
  Sex: Female
  Weight: 122.5 kg

DRUGS (23)
  1. SEROQUEL [Suspect]
     Indication: SLEEP DISORDER
     Dosage: STRENGTH- 25 MG TO 300 MG
     Route: 048
     Dates: start: 20040525
  2. SEROQUEL [Suspect]
     Route: 048
  3. RISPERDAL [Suspect]
     Dosage: 0.5 MG TO 2 MG DAILY
     Route: 048
     Dates: start: 20011009
  4. ABILIFY [Suspect]
  5. CLOZARIL [Concomitant]
  6. ZYPREXA [Concomitant]
  7. DEPAKOTE [Concomitant]
  8. LITHIUM [Concomitant]
  9. NORVASC [Concomitant]
     Route: 048
     Dates: start: 20051003
  10. ASPIRIN [Concomitant]
     Route: 048
     Dates: start: 20060729
  11. BUSPAR [Concomitant]
     Dosage: 10 MG TO 30 MG DAILY
     Route: 048
     Dates: start: 20011009
  12. DIGOXIN [Concomitant]
     Route: 048
     Dates: start: 20011009
  13. ZETIA [Concomitant]
     Route: 048
     Dates: start: 20051027
  14. FAMOTIDINE [Concomitant]
     Route: 048
     Dates: start: 20051025
  15. FERROUS SULFATE TAB [Concomitant]
     Route: 048
     Dates: start: 20011009
  16. SEREVENT [Concomitant]
     Dosage: TWO PUFFS BID
     Dates: start: 20011009
  17. FLOVENT [Concomitant]
     Dosage: TWO PUFFS BID
     Dates: start: 20011009
  18. LASIX [Concomitant]
     Route: 048
     Dates: start: 20011009
  19. WELLBUTRIN [Concomitant]
     Route: 048
     Dates: start: 20011009
  20. GEMFIBROZIL [Concomitant]
     Route: 048
     Dates: start: 20011009
  21. ALBUTEROL [Concomitant]
     Dosage: TWO PUFFS QID PRN
     Dates: start: 20011009
  22. ALLOPURINOL [Concomitant]
     Route: 048
     Dates: start: 20011009
  23. CLONAZEPAM [Concomitant]
     Dates: start: 20040525

REACTIONS (6)
  - CARDIAC FAILURE CONGESTIVE [None]
  - DIABETES MELLITUS [None]
  - DIABETIC NEPHROPATHY [None]
  - HYPOGLYCAEMIA [None]
  - PNEUMONIA [None]
  - RENAL FAILURE [None]
